FAERS Safety Report 5165628-2 (Version None)
Quarter: 2006Q4

REPORT INFORMATION
  Report Type: 
  Country: None (occurrence: None)
  Receive Date: 20061124
  Receipt Date: 20061115
  Transmission Date: 20070319
  Serious: Yes (Life-Threatening, Hospitalization)
  Sender: FDA-Public Use
  Company Number: ENTC2006-0187

PATIENT
  Age: 66 Year
  Sex: Female

DRUGS (8)
  1. STALEVO 100 [Suspect]
     Indication: PARKINSON'S DISEASE
     Dosage: 150 MG, 4 IN 1 D ; 150 MG, 5 IN 1 D ; 900MG (150 MG, 6 IN 1 D) ; 750 MG (150 MG, 5 IN 1 D)
     Route: 048
     Dates: start: 20050727, end: 20060213
  2. STALEVO 100 [Suspect]
     Indication: PARKINSON'S DISEASE
     Dosage: 150 MG, 4 IN 1 D ; 150 MG, 5 IN 1 D ; 900MG (150 MG, 6 IN 1 D) ; 750 MG (150 MG, 5 IN 1 D)
     Route: 048
     Dates: start: 20050213, end: 20060310
  3. STALEVO 100 [Suspect]
     Indication: PARKINSON'S DISEASE
     Dosage: 150 MG, 4 IN 1 D ; 150 MG, 5 IN 1 D ; 900MG (150 MG, 6 IN 1 D) ; 750 MG (150 MG, 5 IN 1 D)
     Route: 048
     Dates: start: 20060615, end: 20060617
  4. STALEVO 100 [Suspect]
     Indication: PARKINSON'S DISEASE
     Dosage: 150 MG, 4 IN 1 D ; 150 MG, 5 IN 1 D ; 900MG (150 MG, 6 IN 1 D) ; 750 MG (150 MG, 5 IN 1 D)
     Route: 048
     Dates: start: 20060310
  5. OXEPAM [Concomitant]
  6. ASASANTIN RETARD [Concomitant]
  7. ESCITALOPRAM OXALATE [Concomitant]
  8. LESCOL [Concomitant]

REACTIONS (16)
  - CONDITION AGGRAVATED [None]
  - DYSKINESIA [None]
  - DYSTONIA [None]
  - FACIAL SPASM [None]
  - FALL [None]
  - LARYNGEAL OEDEMA [None]
  - LIP DISORDER [None]
  - MUSCLE SPASMS [None]
  - MUSCLE TIGHTNESS [None]
  - NEURODEGENERATIVE DISORDER [None]
  - OBSTRUCTIVE AIRWAYS DISORDER [None]
  - PARKINSON'S DISEASE [None]
  - SALIVARY HYPERSECRETION [None]
  - STRIDOR [None]
  - UNDERDOSE [None]
  - VOCAL CORD DISORDER [None]
